FAERS Safety Report 24387597 (Version 1)
Quarter: 2024Q4

REPORT INFORMATION
  Report Type: Spontaneous
  Country: US (occurrence: None)
  Receive Date: 20241001
  Receipt Date: 20241001
  Transmission Date: 20250114
  Serious: Yes (Hospitalization)
  Sender: Public
  Company Number: None

PATIENT
  Age: 84 Year
  Sex: Male
  Weight: 108 kg

DRUGS (1)
  1. BACLOFEN [Suspect]
     Active Substance: BACLOFEN
     Indication: Pain
     Dosage: FREQUENCY : 3 TIMES A DAY;?
     Route: 048

REACTIONS (5)
  - Asthenia [None]
  - Mental status changes [None]
  - Hallucination [None]
  - SARS-CoV-2 test positive [None]
  - Bacterial disease carrier [None]

NARRATIVE: CASE EVENT DATE: 20240123
